FAERS Safety Report 9162151 (Version 2)
Quarter: 2013Q1

REPORT INFORMATION
  Report Type: Spontaneous
  Country: US (occurrence: US)
  Receive Date: 20130314
  Receipt Date: 20130321
  Transmission Date: 20140127
  Serious: Yes (Other)
  Sender: FDA-Public Use
  Company Number: PHEH2013US005728

PATIENT
  Sex: Male

DRUGS (7)
  1. DIOVAN [Suspect]
     Dosage: UNK UKN, UNK
     Dates: start: 200704
  2. DIOVAN [Suspect]
     Dosage: UNK UKN, UNK
  3. VALSARTAN [Suspect]
     Dosage: ONCE DAILY
     Route: 048
     Dates: start: 200704
  4. VERAPAMIL [Concomitant]
     Indication: BLOOD PRESSURE ABNORMAL
  5. SAW PALMETTO [Concomitant]
     Indication: PROSTATIC DISORDER
     Dosage: (TWICE DAILY)
  6. VITAMINS NOS [Concomitant]
  7. RENADINAC [Concomitant]
     Indication: GASTROOESOPHAGEAL REFLUX DISEASE

REACTIONS (2)
  - Blood pressure increased [Unknown]
  - Incorrect dose administered [Unknown]
